FAERS Safety Report 15121432 (Version 2)
Quarter: 2019Q2

REPORT INFORMATION
  Report Type: Report from Study
  Country: IT (occurrence: IT)
  Receive Date: 20180709
  Receipt Date: 20190416
  Transmission Date: 20190711
  Serious: Yes (Death)
  Sender: FDA-Public Use
  Company Number: IT-PFIZER INC-2018272543

PATIENT

DRUGS (5)
  1. VINCRISTINE SULFATE. [Suspect]
     Active Substance: VINCRISTINE SULFATE
     Indication: RHABDOMYOSARCOMA
     Dosage: 1.5 MG/M2, CYCLIC (WEEKLY DURING THE FIRST 7 WEEKS THEN ONLY ON DAY 1 OF EACH CYCLE)
     Route: 042
  2. DOXORUBICIN HCL [Suspect]
     Active Substance: DOXORUBICIN HYDROCHLORIDE
     Indication: RHABDOMYOSARCOMA
     Dosage: 30 MG/M2, CYCLIC (4-H,ON DAYS 1 AND 2)
     Route: 042
  3. IFOSFAMIDE. [Suspect]
     Active Substance: IFOSFAMIDE
     Indication: RHABDOMYOSARCOMA
     Dosage: UNK, CYCLIC (3 G/M2, 3-H ON DAYS 1 AND 2)
     Route: 042
  4. MESNA. [Suspect]
     Active Substance: MESNA
     Indication: RHABDOMYOSARCOMA
     Dosage: UNK, CYCLIC, (3 G/M2 AND HYDRATION)
     Route: 042
  5. DACTINOMYCIN [Suspect]
     Active Substance: DACTINOMYCIN
     Indication: RHABDOMYOSARCOMA
     Dosage: 1.5 MG/M2, CYCLIC (ON DAY 1 GIVEN AS A SINGLE INTRAVENOUS INJECTION)
     Route: 042

REACTIONS (1)
  - Septic shock [Fatal]
